FAERS Safety Report 6845438-8 (Version None)
Quarter: 2010Q3

REPORT INFORMATION
  Report Type: 
  Country: None (occurrence: None)
  Receive Date: 20100715
  Receipt Date: 20070920
  Transmission Date: 20110219
  Serious: No
  Sender: FDA-Public Use
  Company Number: US-PFIZER INC-2007069751

PATIENT
  Sex: Male
  Weight: 74.8 kg

DRUGS (6)
  1. CHANTIX [Suspect]
     Indication: SMOKING CESSATION THERAPY
     Dates: start: 20070701
  2. GEMFIBROZIL [Concomitant]
  3. ATENOLOL [Concomitant]
  4. SIMVASTATIN [Concomitant]
  5. ANTIBIOTICS [Concomitant]
     Indication: SINUSITIS
  6. ZOCOR [Concomitant]

REACTIONS (4)
  - FATIGUE [None]
  - GASTRIC DISORDER [None]
  - NAUSEA [None]
  - SLEEP DISORDER [None]
